FAERS Safety Report 18376333 (Version 1)
Quarter: 2020Q4

REPORT INFORMATION
  Report Type: Report from Study
  Country: BR (occurrence: BR)
  Receive Date: 20201013
  Receipt Date: 20201013
  Transmission Date: 20210114
  Serious: Yes (Other)
  Sender: FDA-Public Use
  Company Number: BR-JNJFOC-20201002820

PATIENT
  Age: 58 Year
  Sex: Male

DRUGS (1)
  1. SIMPONI [Suspect]
     Active Substance: GOLIMUMAB
     Indication: PSORIATIC ARTHROPATHY
     Route: 058
     Dates: start: 2019

REACTIONS (5)
  - Ankle fracture [Unknown]
  - Lumbar vertebral fracture [Unknown]
  - Application site haemorrhage [Unknown]
  - Accident [Unknown]
  - Application site thrombosis [Unknown]

NARRATIVE: CASE EVENT DATE: 202006
